FAERS Safety Report 16490739 (Version 1)
Quarter: 2019Q3

REPORT INFORMATION
  Report Type: Spontaneous
  Country: US (occurrence: US)
  Receive Date: 20190627
  Receipt Date: 20190627
  Transmission Date: 20191004
  Serious: Yes (Hospitalization, Disabling, Other)
  Sender: FDA-Public Use
  Company Number: None

PATIENT
  Age: 47 Year
  Sex: Female
  Weight: 85.5 kg

DRUGS (6)
  1. LEVOTHYROXINE 25MCG [Concomitant]
     Active Substance: LEVOTHYROXINE
  2. AJOVY [Suspect]
     Active Substance: FREMANEZUMAB-VFRM
     Indication: MIGRAINE PROPHYLAXIS
     Dosage: ?          QUANTITY:1 INJECTION(S);OTHER FREQUENCY:1 PER MONTH;?
     Route: 030
     Dates: start: 20190529, end: 20190529
  3. WELLBUTRIN 150 [Concomitant]
  4. SUMATRIPTAN 100 MG [Concomitant]
     Active Substance: SUMATRIPTAN
  5. ROSUVASTATIN CALCIUM 5MG [Concomitant]
     Active Substance: ROSUVASTATIN CALCIUM
  6. TROKENDI 200 MG [Concomitant]

REACTIONS (5)
  - Blood pressure decreased [None]
  - Vomiting [None]
  - Flushing [None]
  - Dizziness [None]
  - Nausea [None]

NARRATIVE: CASE EVENT DATE: 20190529
